FAERS Safety Report 6527402-1 (Version None)
Quarter: 2010Q1

REPORT INFORMATION
  Report Type: 
  Country: None (occurrence: None)
  Receive Date: 20100105
  Receipt Date: 20080818
  Transmission Date: 20100710
  Serious: Yes (Hospitalization, Disabling, Other)
  Sender: FDA-Public Use
  Company Number: IE-PFIZER INC-2003012210

PATIENT
  Age: 74 Year
  Sex: Female
  Weight: 52.5 kg

DRUGS (23)
  1. NEURONTIN [Suspect]
     Indication: NEURALGIA
     Dosage: 300 MG, 1X/DAY
     Dates: start: 20020428, end: 20020621
  2. NEURONTIN [Suspect]
     Dosage: 300 MG, 2X/DAY
     Dates: start: 20020429, end: 20020501
  3. NEURONTIN [Suspect]
     Dosage: 300 MG, UNK
     Route: 048
     Dates: start: 20020524, end: 20020621
  4. CALCICHEW [Concomitant]
     Dosage: 1 DF, 2X/DAY
     Route: 048
  5. DELTACORTRIL [Concomitant]
     Route: 048
  6. ISOPTIN [Concomitant]
     Dosage: 60 MG, 1X/DAY
     Route: 048
  7. NU-SEALS [Concomitant]
     Dosage: 75 MG, 1X/DAY
     Route: 048
  8. HALCION [Concomitant]
     Route: 048
  9. PREDNISOLONE [Concomitant]
     Dosage: 2.5 MG, 1X/DAY
  10. LOSEC [Concomitant]
     Dosage: 1 DF, 1X/DAY
  11. VITAMIN B-12 [Concomitant]
     Dosage: 1 DF, EVERY 3 MONTHS
  12. DF118 [Concomitant]
     Indication: PAIN
     Dosage: 80 MG, EVERY 4 HRS
  13. DIAZEPAM [Concomitant]
     Indication: MUSCLE RELAXANT THERAPY
     Dosage: 2 MG, 2X/DAY
  14. VOLTAREN [Concomitant]
  15. DURAGESIC-100 [Concomitant]
     Dosage: UNK
     Dates: start: 20020422
  16. AMITRIPTYLINE [Concomitant]
     Dosage: 10 MG, 1X/DAY
  17. AMITRIPTYLINE [Concomitant]
     Dosage: 25 MG, 2X/DAY
     Dates: start: 20020225
  18. AMITRIPTYLINE [Concomitant]
     Dosage: 25 MG, 1X/DAY
  19. DISTALGESIC [Concomitant]
  20. AULIN [Concomitant]
  21. NIMESULIDE [Concomitant]
     Dosage: 100 MG, 2X/DAY
  22. MST [Concomitant]
     Indication: BREAKTHROUGH PAIN
     Dosage: 40 MG, 2X/DAY
  23. ORAMORPH SR [Concomitant]
     Indication: BREAKTHROUGH PAIN

REACTIONS (6)
  - DEAFNESS [None]
  - DEAFNESS NEUROSENSORY [None]
  - EAR DISCOMFORT [None]
  - FALL [None]
  - TREMOR [None]
  - VAGINAL HAEMORRHAGE [None]
